FAERS Safety Report 13223623 (Version 1)
Quarter: 2017Q1

REPORT INFORMATION
  Report Type: Other
  Country: US (occurrence: US)
  Receive Date: 20170212
  Receipt Date: 20170212
  Transmission Date: 20170428
  Serious: No
  Sender: FDA-Public Use
  Company Number: US-ACORDA-ACO_127294_2016

PATIENT
  Age: 66 Year
  Sex: Female

DRUGS (2)
  1. AMPYRA [Suspect]
     Active Substance: DALFAMPRIDINE
     Indication: PRODUCT USED FOR UNKNOWN INDICATION
     Dosage: 10 MG, Q 12 HRS
     Route: 048
     Dates: start: 20150808, end: 2016
  2. AMPYRA [Suspect]
     Active Substance: DALFAMPRIDINE
     Dosage: 10 MG, BID
     Route: 065
     Dates: start: 20160319, end: 201608

REACTIONS (11)
  - Insomnia [Recovered/Resolved]
  - Asthenia [Unknown]
  - Arthritis [Unknown]
  - Dizziness [Recovered/Resolved]
  - Condition aggravated [Recovered/Resolved]
  - Condition aggravated [Unknown]
  - Headache [Recovered/Resolved]
  - Balance disorder [Recovered/Resolved]
  - Pain [Unknown]
  - Fatigue [Recovered/Resolved]
  - Constipation [Recovered/Resolved]

NARRATIVE: CASE EVENT DATE: 201603
